FAERS Safety Report 21686328 (Version 1)
Quarter: 2022Q4

REPORT INFORMATION
  Report Type: Report from Study
  Country: US (occurrence: US)
  Receive Date: 20221206
  Receipt Date: 20221206
  Transmission Date: 20230113
  Serious: No
  Sender: FDA-Public Use
  Company Number: US-ABBVIE-4219468

PATIENT
  Sex: Female
  Weight: 54.431 kg

DRUGS (16)
  1. DUOPA [Suspect]
     Active Substance: CARBIDOPA\LEVODOPA
     Indication: Parkinson^s disease
     Route: 050
     Dates: start: 20190513
  2. DUOPA [Suspect]
     Active Substance: CARBIDOPA\LEVODOPA
  3. ONDANSETRON [Concomitant]
     Active Substance: ONDANSETRON
     Indication: Nausea
     Route: 048
  4. VITAMIN B12 [Concomitant]
     Active Substance: CYANOCOBALAMIN
     Indication: Supplementation therapy
     Dosage: 1000 MICROGRAM
  5. Naltrexone (Naltrexone hydrochloride) [Concomitant]
     Indication: Product used for unknown indication
     Route: 048
  6. VITAMIN D3 [Concomitant]
     Active Substance: CHOLECALCIFEROL
     Indication: Supplementation therapy
     Route: 048
  7. ATORVASTATIN CALCIUM [Concomitant]
     Active Substance: ATORVASTATIN CALCIUM
     Indication: Blood cholesterol
  8. SYNTHROID [Concomitant]
     Active Substance: LEVOTHYROXINE SODIUM
     Indication: Thyroid disorder
  9. Amantadine (Amantadine hydrochloride) [Concomitant]
     Indication: Affective disorder
  10. CALCIUM [Concomitant]
     Active Substance: CALCIUM
     Indication: Supplementation therapy
  11. VENLAFAXINE HCL [Concomitant]
     Active Substance: VENLAFAXINE HYDROCHLORIDE
     Indication: Product used for unknown indication
     Route: 048
  12. MELATONIN [Concomitant]
     Active Substance: MELATONIN
     Indication: Sleep disorder therapy
  13. MESTINON [Concomitant]
     Active Substance: PYRIDOSTIGMINE BROMIDE
     Indication: Muscle strength normal
     Dosage: 0.5 TAB TID?60 MG
  14. XANAX [Concomitant]
     Active Substance: ALPRAZOLAM
     Indication: Affective disorder
  15. Carbidopa/levodopa (Carbidopa;Levodopa) [Concomitant]
     Indication: Parkinson^s disease
     Dosage: 25-100MG
  16. Levothyroxine sodium (Levothyroxine sodium [Concomitant]
     Indication: Hypothyroidism
     Dosage: 50 MICROGRAM

REACTIONS (2)
  - Hiccups [Not Recovered/Not Resolved]
  - Device issue [Not Recovered/Not Resolved]
